FAERS Safety Report 9145719 (Version 2)
Quarter: 2013Q1

REPORT INFORMATION
  Report Type: Spontaneous
  Country: IT (occurrence: IT)
  Receive Date: 20130307
  Receipt Date: 20130315
  Transmission Date: 20140127
  Serious: Yes (Hospitalization)
  Sender: FDA-Public Use
  Company Number: IT-BRISTOL-MYERS SQUIBB COMPANY-17417296

PATIENT
  Age: 82 Year
  Sex: Female

DRUGS (8)
  1. COUMADIN TABS 5 MG [Suspect]
     Indication: ATRIAL FIBRILLATION
     Route: 048
     Dates: start: 20100101, end: 20130111
  2. EUTIROX [Concomitant]
     Dosage: 25 MCG TABLETS
     Route: 048
  3. LORTAAN [Concomitant]
     Dosage: 50 MG TABLETS
     Route: 048
  4. LODOZ [Concomitant]
     Dosage: 5/6.25 MG TABLETS
     Route: 048
  5. SINVACOR [Concomitant]
     Dosage: TABS
     Route: 048
  6. PANTOPAN [Concomitant]
     Dosage: TABS
     Route: 048
  7. EUDIGOX [Concomitant]
     Route: 048
  8. CLOBETASOL PROPIONATE [Concomitant]
     Dosage: 0.05% CUTANEOUS FOAM
     Route: 003

REACTIONS (2)
  - Subcutaneous haematoma [Recovering/Resolving]
  - Anaemia [Recovering/Resolving]
